FAERS Safety Report 5781117-6 (Version None)
Quarter: 2008Q2

REPORT INFORMATION
  Report Type: 
  Country: None (occurrence: None)
  Receive Date: 20080620
  Receipt Date: 20080612
  Transmission Date: 20081010
  Serious: Yes (Other)
  Sender: FDA-Public Use
  Company Number: CN-PFIZER INC-2008050206

PATIENT
  Age: 70 Year
  Sex: Male

DRUGS (3)
  1. LIPITOR [Suspect]
     Indication: DRUG USE FOR UNKNOWN INDICATION
     Dosage: TEXT:5 MG DAILY
     Route: 048
     Dates: start: 20070601, end: 20080612
  2. VALSARTAN [Concomitant]
     Route: 048
  3. BISOPROLOL FUMARATE [Concomitant]
     Route: 048

REACTIONS (1)
  - LEUKAEMIA [None]
